FAERS Safety Report 11569841 (Version 1)
Quarter: 2015Q3

REPORT INFORMATION
  Report Type: Spontaneous
  Country: US (occurrence: US)
  Receive Date: 20150916
  Receipt Date: 20150916
  Transmission Date: 20151125
  Serious: No
  Sender: FDA-Public Use
  Company Number: US-ELI_LILLY_AND_COMPANY-US200908005975

PATIENT
  Age: 76 Year
  Sex: Female

DRUGS (6)
  1. MAVIK [Concomitant]
     Active Substance: TRANDOLAPRIL
  2. MAXZIDE [Concomitant]
     Active Substance: HYDROCHLOROTHIAZIDE\TRIAMTERENE
  3. ZETIA [Concomitant]
     Active Substance: EZETIMIBE
  4. SYNTHROID [Concomitant]
     Active Substance: LEVOTHYROXINE SODIUM
  5. FORTEO [Suspect]
     Active Substance: TERIPARATIDE
     Dosage: 20 UG, UNK
     Dates: start: 200811, end: 20090824
  6. PREMARIN [Concomitant]
     Active Substance: ESTROGENS, CONJUGATED

REACTIONS (1)
  - Blood alkaline phosphatase increased [Unknown]
